FAERS Safety Report 24180482 (Version 1)
Quarter: 2024Q3

REPORT INFORMATION
  Report Type: Spontaneous
  Country: US (occurrence: None)
  Receive Date: 20240805
  Receipt Date: 20240805
  Transmission Date: 20241017
  Serious: Yes (Other)
  Sender: Public
  Company Number: None

PATIENT
  Age: 37 Year
  Sex: Male
  Weight: 60.9 kg

DRUGS (6)
  1. BRINCIDOFOVIR [Suspect]
     Active Substance: BRINCIDOFOVIR
     Indication: Monkeypox
     Dosage: FREQUENCY : WEEKLY;?
     Route: 048
     Dates: start: 20240522, end: 20240805
  2. TECOVIRIMAT [Suspect]
     Active Substance: TECOVIRIMAT
     Dates: start: 20240519
  3. CIDOFOVIR [Suspect]
     Active Substance: CIDOFOVIR
     Dates: start: 20240528, end: 20240805
  4. BIKTARVY [Concomitant]
     Active Substance: BICTEGRAVIR SODIUM\EMTRICITABINE\TENOFOVIR ALAFENAMIDE FUMARATE
     Dates: start: 20240523, end: 20240730
  5. DOLUTEGRAVIR [Concomitant]
     Active Substance: DOLUTEGRAVIR
  6. LAMIVUDINE [Concomitant]
     Active Substance: LAMIVUDINE

REACTIONS (18)
  - Monkeypox [None]
  - Condition aggravated [None]
  - Skin lesion [None]
  - Nausea [None]
  - Vomiting [None]
  - Alanine aminotransferase increased [None]
  - Aspartate aminotransferase increased [None]
  - Skin infection [None]
  - Soft tissue infection [None]
  - Scab [None]
  - Scab [None]
  - Skin exfoliation [None]
  - Glycosuria [None]
  - Acute kidney injury [None]
  - Renal tubular dysfunction [None]
  - Blood phosphorus decreased [None]
  - Blood creatinine increased [None]
  - Hypokalaemia [None]

NARRATIVE: CASE EVENT DATE: 20240723
